FAERS Safety Report 9018871 (Version 2)
Quarter: 2013Q2

REPORT INFORMATION
  Report Type: Spontaneous
  Country: US (occurrence: US)
  Receive Date: 20130118
  Receipt Date: 20130424
  Transmission Date: 20140414
  Serious: No
  Sender: FDA-Public Use
  Company Number: US-009507513-1301USA005824

PATIENT
  Age: 24 Year
  Sex: Female

DRUGS (2)
  1. IMPLANON [Suspect]
     Indication: CONTRACEPTION
     Dosage: UNK
     Route: 059
     Dates: start: 20120202, end: 20120730
  2. IMPLANON [Suspect]
     Dosage: UNK
     Route: 059
     Dates: start: 20120823

REACTIONS (1)
  - Device breakage [Unknown]
